FAERS Safety Report 7213768-6 (Version None)
Quarter: 2011Q1

REPORT INFORMATION
  Report Type: 
  Country: None (occurrence: None)
  Receive Date: 20110106
  Receipt Date: 20101216
  Transmission Date: 20110831
  Serious: No
  Sender: FDA-Public Use
  Company Number: US-B.I. PHARMACEUTICALS,INC./RIDGEFIELD-2010-BP-14860BP

PATIENT
  Sex: Female

DRUGS (3)
  1. ALLEGRA [Concomitant]
     Indication: SEASONAL ALLERGY
  2. PRADAXA [Suspect]
     Indication: ATRIAL FIBRILLATION
     Dosage: 300 MG
     Route: 048
     Dates: start: 20101208
  3. SINGULAIR [Concomitant]

REACTIONS (5)
  - DYSPHAGIA [None]
  - OROPHARYNGEAL PAIN [None]
  - NASOPHARYNGITIS [None]
  - THROAT TIGHTNESS [None]
  - WEIGHT DECREASED [None]
